FAERS Safety Report 11945347 (Version 2)
Quarter: 2016Q1

REPORT INFORMATION
  Report Type: Report from Study
  Country: US (occurrence: US)
  Receive Date: 20160125
  Receipt Date: 20160222
  Transmission Date: 20160526
  Serious: Yes (Life-Threatening, Hospitalization, Other)
  Sender: FDA-Public Use
  Company Number: US-GILEAD-2015-0182591

PATIENT
  Age: 59 Year
  Sex: Male

DRUGS (1)
  1. IDELALISIB [Suspect]
     Active Substance: IDELALISIB
     Indication: B-CELL LYMPHOMA
     Dosage: 150 MG, BID
     Route: 048
     Dates: start: 20150923

REACTIONS (6)
  - Pneumonitis [Recovered/Resolved]
  - Hypotension [Unknown]
  - Sepsis [Unknown]
  - Skin exfoliation [Recovered/Resolved]
  - Transaminases increased [Recovered/Resolved]
  - Rash erythematous [Recovered/Resolved]
